FAERS Safety Report 24230444 (Version 1)
Quarter: 2024Q3

REPORT INFORMATION
  Report Type: Spontaneous
  Country: JP (occurrence: None)
  Receive Date: 20240821
  Receipt Date: 20240821
  Transmission Date: 20241016
  Serious: Yes (Hospitalization, Other)
  Sender: Alvotech
  Company Number: JP-ALVOTECHPMS-2024-ALVOTECHPMS-002116

PATIENT
  Age: 30 Year
  Sex: Male
  Weight: 58.2 kg

DRUGS (1)
  1. ADALIMUMAB [Suspect]
     Active Substance: ADALIMUMAB
     Indication: Crohn^s disease

REACTIONS (1)
  - IgA nephropathy [Unknown]
